FAERS Safety Report 19417607 (Version 1)
Quarter: 2021Q2

REPORT INFORMATION
  Report Type: Spontaneous
  Country: US (occurrence: US)
  Receive Date: 20210615
  Receipt Date: 20210615
  Transmission Date: 20210717
  Serious: No
  Sender: FDA-Public Use
  Company Number: None

PATIENT
  Age: 63 Year
  Sex: Male

DRUGS (1)
  1. XELODA [Suspect]
     Active Substance: CAPECITABINE
     Indication: PROSTATE CANCER METASTATIC
     Route: 048
     Dates: start: 202106

REACTIONS (1)
  - Off label use [None]

NARRATIVE: CASE EVENT DATE: 20210610
